FAERS Safety Report 10884276 (Version 1)
Quarter: 2015Q1

REPORT INFORMATION
  Report Type: Spontaneous
  Country: US (occurrence: None)
  Receive Date: 20150226
  Receipt Date: 20150226
  Transmission Date: 20150721
  Serious: Yes (Other)
  Sender: FDA-Public Use
  Company Number: None

PATIENT
  Age: 72 Year
  Sex: Male

DRUGS (12)
  1. CALCIUM CARBONATE. [Concomitant]
     Active Substance: CALCIUM CARBONATE
  2. ENZALUTAMIDE (XTANDI) [Concomitant]
  3. MULTIVITAMIN LUTEIN (CENTRUM SILVER) [Concomitant]
  4. NAPROXEN SODIUM (ALEVE, ANAPROX) [Concomitant]
  5. DOCUSATE (COLACE) [Concomitant]
  6. ONDANSETRON (ZOFRAN) [Concomitant]
  7. CRESTOR [Concomitant]
     Active Substance: ROSUVASTATIN CALCIUM
  8. CEPHALEXIN (KEFLEX) [Concomitant]
  9. PROCHLORPERAZINE (COMPAZINE) [Concomitant]
  10. LISINOPRIL-HYDROCHLOROTHIAZIDE (PRINZIDE) [Concomitant]
  11. AMLODIPINE (NORVASC) [Concomitant]
  12. SIPULEUCEL-T [Suspect]
     Active Substance: SIPULEUCEL-T

REACTIONS (1)
  - Diffuse large B-cell lymphoma recurrent [None]

NARRATIVE: CASE EVENT DATE: 20150114
